FAERS Safety Report 9155233 (Version 2)
Quarter: 2013Q1

REPORT INFORMATION
  Report Type: Spontaneous
  Country: US (occurrence: None)
  Receive Date: 20130206
  Receipt Date: 20130329
  Transmission Date: 20140127
  Serious: Yes (Hospitalization)
  Sender: FDA-Public Use
  Company Number: ACO_33954_2013

PATIENT
  Age: 66 Year
  Sex: Female

DRUGS (7)
  1. AMPYRA [Suspect]
     Indication: GAIT DISTURBANCE
     Route: 048
     Dates: start: 201101
  2. CARBAMAZEPINE (CARBAMAZEPINE) CHEWABLE TABLET [Concomitant]
  3. SERTRALINE (SERTRALINE) (SERTRALINE) [Concomitant]
  4. GABAPENTIN (GABAPENTIN) [Concomitant]
  5. DICLOFENAC (DICLOFENAC) [Concomitant]
  6. LASIX (FUROSEMIDE) [Concomitant]
  7. RITALIN (METHYLPHENIDATE HYDROCHLORIDE) [Concomitant]

REACTIONS (5)
  - Hip fracture [None]
  - Sluggishness [None]
  - Gait disturbance [None]
  - Fall [None]
  - Drug dose omission [None]
